FAERS Safety Report 24591520 (Version 1)
Quarter: 2024Q4

REPORT INFORMATION
  Report Type: Report from Study
  Country: US (occurrence: US)
  Receive Date: 20241108
  Receipt Date: 20241108
  Transmission Date: 20250115
  Serious: Yes (Hospitalization)
  Sender: BIOGEN
  Company Number: US-BIOGEN-2024BI01289360

PATIENT
  Age: 33 Year
  Sex: Female

DRUGS (3)
  1. TYSABRI [Suspect]
     Active Substance: NATALIZUMAB
     Indication: Multiple sclerosis
     Route: 050
     Dates: start: 20240820
  2. TYSABRI [Suspect]
     Active Substance: NATALIZUMAB
     Route: 050
     Dates: start: 20160216, end: 20170829
  3. TYSABRI [Suspect]
     Active Substance: NATALIZUMAB
     Route: 050
     Dates: start: 20200306, end: 20230815

REACTIONS (3)
  - Swelling [Not Recovered/Not Resolved]
  - Hemihypoaesthesia [Not Recovered/Not Resolved]
  - Musculoskeletal disorder [Not Recovered/Not Resolved]

NARRATIVE: CASE EVENT DATE: 20241001
